FAERS Safety Report 14379645 (Version 1)
Quarter: 2018Q1

REPORT INFORMATION
  Report Type: Spontaneous
  Country: US (occurrence: US)
  Receive Date: 20180111
  Receipt Date: 20180111
  Transmission Date: 20180509
  Serious: Yes (Death, Hospitalization)
  Sender: FDA-Public Use
  Company Number: None

PATIENT
  Age: 52 Year
  Sex: Male
  Weight: 66.6 kg

DRUGS (1)
  1. CISPLATIN. [Suspect]
     Active Substance: CISPLATIN
     Dates: end: 20171219

REACTIONS (13)
  - Neutrophil count decreased [None]
  - Thrombocytopenia [None]
  - Rhinorrhoea [None]
  - Diarrhoea [None]
  - Hypotension [None]
  - Fall [None]
  - Asthenia [None]
  - Septic shock [None]
  - Cardiac arrest [None]
  - Productive cough [None]
  - Tachycardia [None]
  - Dehydration [None]
  - Blood creatinine increased [None]

NARRATIVE: CASE EVENT DATE: 20171231
